FAERS Safety Report 14380293 (Version 2)
Quarter: 2018Q1

REPORT INFORMATION
  Report Type: Spontaneous
  Country: US (occurrence: US)
  Receive Date: 20180112
  Receipt Date: 20180212
  Transmission Date: 20180509
  Serious: No
  Sender: FDA-Public Use
  Company Number: US-PFIZER INC-2018014229

PATIENT
  Age: 24 Year
  Sex: Female

DRUGS (2)
  1. PROVERA [Suspect]
     Active Substance: MEDROXYPROGESTERONE ACETATE
     Dosage: 5 MG
  2. PROVERA [Suspect]
     Active Substance: MEDROXYPROGESTERONE ACETATE
     Dosage: 5 MG, CYCLIC (5 MG FOR 10 DAYS A MONTH)

REACTIONS (6)
  - Dysmenorrhoea [Unknown]
  - Menorrhagia [Unknown]
  - Pain in extremity [Unknown]
  - Memory impairment [Unknown]
  - Metrorrhagia [Unknown]
  - Drug hypersensitivity [Unknown]

NARRATIVE: CASE EVENT DATE: 20131029
